FAERS Safety Report 15037579 (Version 1)
Quarter: 2018Q2

REPORT INFORMATION
  Report Type: Spontaneous
  Country: DE (occurrence: DE)
  Receive Date: 20180620
  Receipt Date: 20180620
  Transmission Date: 20180711
  Serious: Yes (Hospitalization)
  Sender: FDA-Public Use
  Company Number: DE-TEVA-2018-DE-909298

PATIENT
  Age: 61 Year
  Sex: Female
  Weight: 113 kg

DRUGS (14)
  1. HALOPERIDOL. [Suspect]
     Active Substance: HALOPERIDOL
     Route: 048
  2. FLUVOXAMINE [Suspect]
     Active Substance: FLUVOXAMINE
     Route: 048
  3. QUILONORM 12,2MMOL (LITHIUM CARBONATE) [Suspect]
     Active Substance: LITHIUM CARBONATE
     Route: 048
  4. VIANI [Concomitant]
     Active Substance: FLUTICASONE PROPIONATE\SALMETEROL XINAFOATE
     Route: 055
  5. RAMIPRIL. [Concomitant]
     Active Substance: RAMIPRIL
     Route: 048
  6. PHYTONOCTU [Concomitant]
     Route: 048
  7. VITAMIN B [Concomitant]
     Active Substance: VITAMIN B
     Route: 048
  8. CODEINE [Concomitant]
     Active Substance: CODEINE
     Route: 065
  9. CETEBE [Concomitant]
     Route: 048
  10. BIPERIDEN [Concomitant]
     Active Substance: BIPERIDEN
  11. QUETIAPINE. [Suspect]
     Active Substance: QUETIAPINE
     Route: 048
  12. PROMETHAZINE [Suspect]
     Active Substance: PROMETHAZINE\PROMETHAZINE HYDROCHLORIDE
     Route: 048
  13. LEVOTHYROXINE. [Concomitant]
     Active Substance: LEVOTHYROXINE
     Route: 048
  14. PROPRANOLOL [Concomitant]
     Active Substance: PROPRANOLOL HYDROCHLORIDE
     Route: 048

REACTIONS (8)
  - General physical health deterioration [Unknown]
  - Diarrhoea [Unknown]
  - Toxicity to various agents [Unknown]
  - Schizophrenia [Unknown]
  - Hemiparesis [Unknown]
  - Medication error [Unknown]
  - Dysarthria [Unknown]
  - Renal impairment [Unknown]
